FAERS Safety Report 22173795 (Version 2)
Quarter: 2023Q2

REPORT INFORMATION
  Report Type: Report from Study
  Country: US (occurrence: US)
  Receive Date: 20230404
  Receipt Date: 20230418
  Transmission Date: 20230722
  Serious: Yes (Life-Threatening, Hospitalization)
  Sender: FDA-Public Use
  Company Number: US-ABBVIE-4697736

PATIENT
  Age: 47 Year
  Sex: Female

DRUGS (3)
  1. VENETOCLAX [Suspect]
     Active Substance: VENETOCLAX
     Indication: Acute myeloid leukaemia
     Dosage: DOSAGE, FREQUENCY, THERAPY DATES, ROA NOT REPORTED?VENETOCLAX PLACED ON HOLD
     Route: 048
     Dates: end: 20230316
  2. CLADRIBINE [Concomitant]
     Active Substance: CLADRIBINE
     Indication: Acute myeloid leukaemia
     Dosage: DOSAGE, FREQUENCY, THERAPY DATES, ROA NOT REPORTED
     Route: 065
     Dates: end: 20230306
  3. CYTARABINE [Concomitant]
     Active Substance: CYTARABINE
     Indication: Acute myeloid leukaemia
     Dosage: DOSAGE, FREQUENCY, THERAPY DATES, ROA NOT REPORTED
     Route: 065
     Dates: end: 20230312

REACTIONS (3)
  - Sepsis [Recovered/Resolved]
  - Disseminated trichosporonosis [Not Recovered/Not Resolved]
  - Pulmonary trichosporonosis [Not Recovered/Not Resolved]

NARRATIVE: CASE EVENT DATE: 20230317
